FAERS Safety Report 8226484-9 (Version None)
Quarter: 2012Q1

REPORT INFORMATION
  Report Type: 
  Country: None (occurrence: None)
  Receive Date: 20120322
  Receipt Date: 20120313
  Transmission Date: 20120608
  Serious: Yes (Other)
  Sender: FDA-Public Use
  Company Number: US-ASTRAZENECA-2011SE68548

PATIENT
  Age: 46 Year
  Sex: Male

DRUGS (2)
  1. SEROQUEL [Suspect]
     Indication: HUNTINGTON'S DISEASE
     Route: 048
  2. SEROQUEL [Suspect]
     Route: 048

REACTIONS (2)
  - OFF LABEL USE [None]
  - GENERAL PHYSICAL HEALTH DETERIORATION [None]
